FAERS Safety Report 5926021-5 (Version None)
Quarter: 2008Q3

REPORT INFORMATION
  Report Type: 
  Country: None (occurrence: None)
  Receive Date: 20080924
  Receipt Date: 20080709
  Transmission Date: 20090109
  Serious: Yes (Other)
  Sender: FDA-Public Use
  Company Number: US-WYE-H04979308

PATIENT
  Age: 78 Year
  Sex: Male
  Weight: 86.26 kg

DRUGS (14)
  1. TORISEL [Suspect]
     Indication: RENAL CELL CARCINOMA
     Dosage: 20 MG 1X PER 1 WK, INTRAVENOUS
     Route: 042
     Dates: start: 20080111, end: 20080715
  2. TORISEL [Suspect]
     Indication: RENAL CELL CARCINOMA
     Dosage: 20 MG 1X PER 1 WK, INTRAVENOUS
     Route: 042
     Dates: start: 20080716
  3. METOPROLOL TARTRATE [Concomitant]
  4. LASIX [Concomitant]
  5. COUMADIN [Concomitant]
  6. DIGOXIN [Concomitant]
  7. PERCOCET [Concomitant]
  8. SYNTHROID [Concomitant]
  9. HYDRALAZINE HCL [Concomitant]
  10. AMBIEN [Concomitant]
  11. LEXAPRO [Concomitant]
  12. ZAROXOLYN [Concomitant]
  13. NEURONTIN [Concomitant]
  14. PREDNISONE [Concomitant]

REACTIONS (1)
  - FREQUENT BOWEL MOVEMENTS [None]
